FAERS Safety Report 18043831 (Version 1)
Quarter: 2020Q3

REPORT INFORMATION
  Report Type: Spontaneous
  Country: US (occurrence: US)
  Receive Date: 20200720
  Receipt Date: 20200720
  Transmission Date: 20201103
  Serious: Yes (Hospitalization, Other)
  Sender: FDA-Public Use
  Company Number: US-MYLANLABS-2020M1064144

PATIENT
  Sex: Female

DRUGS (1)
  1. CONTAC COLD AND FLU ? DAY AND NIGHT [Suspect]
     Active Substance: ACETAMINOPHEN\CHLORPHENIRAMINE MALEATE\PHENYLEPHRINE HYDROCHLORIDE
     Indication: NASOPHARYNGITIS
     Dosage: UNK
     Route: 048

REACTIONS (4)
  - Dysphagia [Unknown]
  - Product use complaint [Unknown]
  - Oesophageal pain [Unknown]
  - Foreign body in throat [Unknown]
